FAERS Safety Report 9231904 (Version 2)
Quarter: 2013Q2

REPORT INFORMATION
  Report Type: Spontaneous
  Country: JP (occurrence: JP)
  Receive Date: 20130415
  Receipt Date: 20130506
  Transmission Date: 20140414
  Serious: Yes (Life-Threatening, Hospitalization)
  Sender: FDA-Public Use
  Company Number: JP-ASTRAZENECA-2013SE23454

PATIENT
  Age: 49 Year
  Sex: Female
  Weight: 47 kg

DRUGS (1)
  1. ZOLADEX [Suspect]
     Indication: ENDOMETRIOSIS
     Route: 058
     Dates: start: 20130402, end: 20130402

REACTIONS (3)
  - Injection site haematoma [Recovering/Resolving]
  - Injection site pain [Recovered/Resolved]
  - Anaemia [Recovered/Resolved]
